FAERS Safety Report 24287553 (Version 1)
Quarter: 2024Q3

REPORT INFORMATION
  Report Type: Spontaneous
  Country: US (occurrence: None)
  Receive Date: 20240904
  Receipt Date: 20240904
  Transmission Date: 20241016
  Serious: Yes (Hospitalization)
  Sender: Public
  Company Number: None

PATIENT
  Sex: Male

DRUGS (11)
  1. PULMOZYME [Suspect]
     Active Substance: DORNASE ALFA
     Indication: Cystic fibrosis lung
     Route: 055
     Dates: start: 20230504
  2. AZELASTINE SPR [Concomitant]
  3. BACTRIM DS [Concomitant]
     Active Substance: SULFAMETHOXAZOLE\TRIMETHOPRIM
  4. CREON CAP 6000UNIT [Concomitant]
  5. CYPROHEPTAD SYP 2MG/5ML [Concomitant]
  6. FLUTICASONE SPR [Concomitant]
  7. MVW COMPLETE CHW D5000 [Concomitant]
  8. OMEPRAZOLE [Concomitant]
  9. PERTZYE CAP 8000UNIT [Concomitant]
  10. POLYETHYLENE GLYCOL 3350 [Concomitant]
     Active Substance: POLYETHYLENE GLYCOL 3350
  11. TRIKAFTA [Concomitant]

REACTIONS (4)
  - Oxygen saturation decreased [None]
  - Rhinorrhoea [None]
  - Infective pulmonary exacerbation of cystic fibrosis [None]
  - Product dose omission issue [None]
